FAERS Safety Report 5087961-5 (Version None)
Quarter: 2006Q3

REPORT INFORMATION
  Report Type: 
  Country: None (occurrence: None)
  Receive Date: 20060821
  Receipt Date: 20060803
  Transmission Date: 20061208
  Serious: Yes (Hospitalization)
  Sender: FDA-Public Use
  Company Number: DSA_81657_2006

PATIENT
  Age: 59 Year
  Sex: Male
  Weight: 89.8122 kg

DRUGS (16)
  1. XYREM [Suspect]
     Indication: NARCOLEPSY
     Dosage: 2.25 G TWICE NIGHTLY PO
     Route: 048
     Dates: start: 20060701
  2. ALLOPURINOL [Concomitant]
  3. AVANDIA [Concomitant]
  4. DIGITEK [Concomitant]
  5. ASPIRIN [Concomitant]
  6. INSULIN [Concomitant]
  7. LIPITOR [Concomitant]
  8. NEURONTIN [Concomitant]
  9. COREG [Concomitant]
  10. DILAUDID [Concomitant]
  11. K-DUR 10 [Concomitant]
  12. PROTONIX [Concomitant]
  13. PROCRIT [Concomitant]
  14. ZAROXOLYN [Concomitant]
  15. DEMEDEX [Concomitant]
  16. COLCHICINE [Concomitant]

REACTIONS (1)
  - CARDIAC FAILURE CONGESTIVE [None]
